FAERS Safety Report 10583315 (Version 4)
Quarter: 2015Q1

REPORT INFORMATION
  Report Type: Report from Study
  Country: RO (occurrence: RO)
  Receive Date: 20141114
  Receipt Date: 20150126
  Transmission Date: 20150720
  Serious: No
  Sender: FDA-Public Use
  Company Number: RO-OTSUKA-US-2014-13552

PATIENT

DRUGS (2)
  1. LORAZEPAM. [Concomitant]
     Active Substance: LORAZEPAM
     Indication: INSOMNIA
     Dosage: 3 MG MILLIGRAM(S), UNK
     Route: 048
     Dates: start: 20141105
  2. BLINDED OPC-14597 [Suspect]
     Active Substance: CILOSTAZOL
     Indication: BIPOLAR I DISORDER
     Dosage: 400 MG MILLIGRAM(S), UNK
     Route: 030
     Dates: start: 20140924, end: 20141022

REACTIONS (1)
  - Bipolar I disorder [Recovered/Resolved]

NARRATIVE: CASE EVENT DATE: 20141106
